FAERS Safety Report 10044520 (Version 1)
Quarter: 2014Q1

REPORT INFORMATION
  Report Type: Spontaneous
  Country: US (occurrence: None)
  Receive Date: 20140306
  Receipt Date: 20140306
  Transmission Date: 20141002
  Serious: Yes (Other)
  Sender: FDA-Public Use
  Company Number: 163-21880-13070474

PATIENT
  Age: 67 Year
  Sex: Female

DRUGS (17)
  1. REVLIMID [Suspect]
     Indication: PLASMA CELL MYELOMA
     Route: 048
     Dates: start: 200811
  2. ACYCLOVIR (ACICLOVIR) [Concomitant]
  3. FOLIC ACID (FOLIC ACID) [Concomitant]
  4. DESONIDE (DESONIDE) (LOTION (NOT FOR OPHTHALMIC USE)) [Concomitant]
  5. OXYCODONE HCL ((OXYCODONE HYDROCHLORIDE) [Concomitant]
  6. VITAMIN B12 (CYANOCOBALAMIN) [Concomitant]
  7. FISH OIL (FISH OIL) [Concomitant]
  8. VITAMIN D3 (COLECALCIFEROL) [Concomitant]
  9. DAPSONE (DAPSONE) [Concomitant]
  10. MYCELEX (CLOTRIMAZOLE) (CREAM) [Concomitant]
  11. PANTOPRAZOLE (PANTOPRAZOLE) [Concomitant]
  12. LASIX (FUROSEMIDE) [Concomitant]
  13. DEXAMETHASONE (DEXAMETHASONE) [Concomitant]
  14. SYNTHROID (LEVOTHYROXINE SODIUM) [Concomitant]
  15. AREDIA (PAMIDRONATE DISODIUM) [Concomitant]
  16. POTASSIUM CL ER (POTASSIUM CHLORIDE) [Concomitant]
  17. CLONAZEPAM (CLONAZEPAM) [Concomitant]

REACTIONS (1)
  - Thrombosis [None]
